FAERS Safety Report 13537713 (Version 1)
Quarter: 2017Q2

REPORT INFORMATION
  Report Type: Spontaneous
  Country: TN (occurrence: TN)
  Receive Date: 20170511
  Receipt Date: 20170511
  Transmission Date: 20170830
  Serious: Yes (Other)
  Sender: FDA-Public Use
  Company Number: TN-BAUSCH-BL-2017-014217

PATIENT
  Age: 65 Year

DRUGS (3)
  1. AVASTIN [Concomitant]
     Active Substance: BEVACIZUMAB
     Indication: AGE-RELATED MACULAR DEGENERATION
  2. LATANOPROST. [Suspect]
     Active Substance: LATANOPROST
     Indication: PRODUCT USED FOR UNKNOWN INDICATION
     Dosage: IN THE EVENING
     Route: 065
     Dates: start: 20170206, end: 2017
  3. CARTEOL LP 1% COLLYRE ? LIB?RATION PROLONG?E [Suspect]
     Active Substance: CARTEOLOL HYDROCHLORIDE
     Indication: PRODUCT USED FOR UNKNOWN INDICATION
     Dosage: IN THE MORNING
     Route: 065
     Dates: start: 20170206, end: 2017

REACTIONS (3)
  - Paraesthesia [Recovering/Resolving]
  - Erythema [Recovering/Resolving]
  - Keratic precipitates [Recovering/Resolving]

NARRATIVE: CASE EVENT DATE: 2017
